FAERS Safety Report 6822166-6 (Version None)
Quarter: 2010Q3

REPORT INFORMATION
  Report Type: 
  Country: None (occurrence: None)
  Receive Date: 20100702
  Receipt Date: 20100629
  Transmission Date: 20110219
  Serious: Yes (Death, Hospitalization, Other)
  Sender: FDA-Public Use
  Company Number: 2010SP036150

PATIENT
  Age: 48 Year
  Sex: Female

DRUGS (7)
  1. VIRAFERONPEG [Suspect]
     Indication: HEPATITIS C
     Dosage: PO
     Route: 048
     Dates: start: 20091107, end: 20091207
  2. REBETOL [Suspect]
     Indication: HEPATITIS C
     Dosage: PO
     Route: 048
     Dates: start: 20090930, end: 20091207
  3. VIDEX [Suspect]
     Indication: HIV INFECTION
     Dosage: PO
     Route: 048
     Dates: end: 20091207
  4. NORVIR [Suspect]
     Indication: HIV INFECTION
     Dosage: 1 DF; QD; PO
     Route: 048
     Dates: start: 20070101, end: 20091207
  5. REYATAZ [Suspect]
     Indication: HIV INFECTION
     Dosage: 300 MG; QD; PO
     Route: 048
     Dates: start: 20070101, end: 20091207
  6. VIREAD [Suspect]
     Indication: HIV INFECTION
     Dosage: 1 DF; QD; PO
     Route: 048
     Dates: start: 20070101, end: 20091207
  7. BACTRIM [Concomitant]

REACTIONS (14)
  - AGITATION [None]
  - ANURIA [None]
  - COLITIS [None]
  - COUGH [None]
  - CYTOLYTIC HEPATITIS [None]
  - DIALYSIS [None]
  - DISSEMINATED INTRAVASCULAR COAGULATION [None]
  - LIPASE INCREASED [None]
  - METABOLIC ACIDOSIS [None]
  - MULTI-ORGAN FAILURE [None]
  - RENAL TUBULAR DISORDER [None]
  - RESPIRATORY ACIDOSIS [None]
  - TACHYCARDIA [None]
  - TACHYPNOEA [None]
